FAERS Safety Report 8073481-2 (Version None)
Quarter: 2012Q1

REPORT INFORMATION
  Report Type: 
  Country: None (occurrence: None)
  Receive Date: 20120126
  Receipt Date: 20120126
  Transmission Date: 20120608
  Serious: No
  Sender: FDA-Public Use
  Company Number: None

PATIENT
  Age: 58 Year
  Sex: Female
  Weight: 65.317 kg

DRUGS (2)
  1. ATORVASTATIN [Suspect]
     Indication: LOW DENSITY LIPOPROTEIN INCREASED
     Dosage: 10MG
     Route: 048
     Dates: start: 20111207, end: 20111219
  2. ATORVASTATIN [Suspect]
     Indication: FAMILIAL RISK FACTOR
     Dosage: 10MG
     Route: 048
     Dates: start: 20111207, end: 20111219

REACTIONS (2)
  - LIMB DISCOMFORT [None]
  - MYALGIA [None]
